FAERS Safety Report 14364549 (Version 1)
Quarter: 2018Q1

REPORT INFORMATION
  Report Type: Spontaneous
  Country: US (occurrence: US)
  Receive Date: 20180106
  Receipt Date: 20180106
  Transmission Date: 20180509
  Serious: Yes (Death, Life-Threatening, Hospitalization, Disabling, Other)
  Sender: FDA-Public Use
  Company Number: None

PATIENT
  Sex: Female
  Weight: 135 kg

DRUGS (18)
  1. AMIODARONE [Suspect]
     Active Substance: AMIODARONE
     Indication: ATRIAL FIBRILLATION
     Dosage: ?          OTHER STRENGTH:UNKNOWN;QUANTITY:1 TABLET(S);?
     Route: 048
     Dates: start: 20161115, end: 20170403
  2. OMEPRAZOLE. [Concomitant]
     Active Substance: OMEPRAZOLE
  3. LEVOTHYROXINE. [Concomitant]
     Active Substance: LEVOTHYROXINE
  4. GLIMEPIRIDE. [Concomitant]
     Active Substance: GLIMEPIRIDE
  5. ALPRAZOLAM. [Concomitant]
     Active Substance: ALPRAZOLAM
  6. NORTRIPTYLINE [Concomitant]
     Active Substance: NORTRIPTYLINE
  7. ALBUTEROL SULFATE SOLUTION FOR INHALATION [Concomitant]
     Active Substance: ALBUTEROL SULFATE
  8. ADVAIR HFA [Concomitant]
     Active Substance: FLUTICASONE PROPIONATE\SALMETEROL XINAFOATE
  9. FUROSEMIDE. [Concomitant]
     Active Substance: FUROSEMIDE
  10. COREG [Concomitant]
     Active Substance: CARVEDILOL
  11. SPIRONOLACTONE. [Concomitant]
     Active Substance: SPIRONOLACTONE
  12. METFORMIN [Concomitant]
     Active Substance: METFORMIN HYDROCHLORIDE
  13. POTASSIUM [Concomitant]
     Active Substance: POTASSIUM
  14. WARFARIN [Concomitant]
     Active Substance: WARFARIN
  15. NEBULIZER [Concomitant]
     Active Substance: DEVICE
  16. SPIRIVA [Concomitant]
     Active Substance: TIOTROPIUM BROMIDE MONOHYDRATE
  17. SERTRALINE [Concomitant]
     Active Substance: SERTRALINE HYDROCHLORIDE
  18. MAGNESIUM [Concomitant]
     Active Substance: MAGNESIUM

REACTIONS (12)
  - Hypopnoea [None]
  - Muscle injury [None]
  - Weight increased [None]
  - Thyroid disorder [None]
  - Lethargy [None]
  - Hypersomnia [None]
  - Fluid retention [None]
  - Dyspnoea [None]
  - Oxygen saturation decreased [None]
  - Cardiac output decreased [None]
  - Pneumonia [None]
  - Cardiac disorder [None]

NARRATIVE: CASE EVENT DATE: 20161115
